FAERS Safety Report 25721541 (Version 1)
Quarter: 2025Q3

REPORT INFORMATION
  Report Type: Spontaneous
  Country: US (occurrence: None)
  Receive Date: 20250823
  Receipt Date: 20250823
  Transmission Date: 20251021
  Serious: No
  Sender: FDA-CTU
  Company Number: None

PATIENT
  Age: 45 Year
  Sex: Female
  Weight: 77.85 kg

DRUGS (13)
  1. WINREVAIR [Suspect]
     Active Substance: SOTATERCEPT-CSRK
     Indication: Pulmonary arterial hypertension
     Route: 050
  2. TRAZODONE HYDROCHLORIDE [Concomitant]
     Active Substance: TRAZODONE HYDROCHLORIDE
  3. Bupropion HCL 150 MG xl tablet [Concomitant]
  4. VENLAFAXINE HYDROCHLORIDE [Concomitant]
     Active Substance: VENLAFAXINE HYDROCHLORIDE
  5. ROSUVASTATIN [Concomitant]
     Active Substance: ROSUVASTATIN
  6. ALBUTEROL SULFATE [Concomitant]
     Active Substance: ALBUTEROL SULFATE
  7. PANTOPRAZOLE SODIUM [Concomitant]
     Active Substance: PANTOPRAZOLE SODIUM
  8. WINREVAIR [Concomitant]
     Active Substance: SOTATERCEPT-CSRK
  9. FUROSEMIDE [Concomitant]
     Active Substance: FUROSEMIDE
  10. TADALAFIL [Concomitant]
     Active Substance: TADALAFIL
  11. OPSUMIT [Concomitant]
     Active Substance: MACITENTAN
  12. VITAMIN D [Concomitant]
     Active Substance: VITAMIN D NOS
  13. POTASSIUM CHLORIDE [Concomitant]
     Active Substance: POTASSIUM CHLORIDE

REACTIONS (3)
  - Weight increased [None]
  - Decreased appetite [None]
  - Cardiac disorder [None]
